FAERS Safety Report 6300788-9 (Version None)
Quarter: 2009Q3

REPORT INFORMATION
  Report Type: 
  Country: None (occurrence: None)
  Receive Date: 20090807
  Receipt Date: 20090727
  Transmission Date: 20100115
  Serious: Yes (Death)
  Sender: FDA-Public Use
  Company Number: CZ-RANBAXY-2009RR-26063

PATIENT
  Age: 73 Year
  Sex: Male

DRUGS (7)
  1. MIDAZOLAM HCL [Suspect]
     Route: 042
  2. RANPISUL [Suspect]
     Dosage: 1.5 G, UNK
  3. SUFENTANIL CITRATE [Suspect]
  4. PROPOFOL [Suspect]
  5. ROCURONIUM BROMIDE [Suspect]
     Dosage: 50 MG, UNK
  6. EPINEPHRINE [Concomitant]
  7. NOREPINEPHRINE BITARTRATE [Concomitant]

REACTIONS (1)
  - ANAPHYLACTIC REACTION [None]
